FAERS Safety Report 10185390 (Version 2)
Quarter: 2014Q3

REPORT INFORMATION
  Report Type: Spontaneous
  Country: IT (occurrence: IT)
  Receive Date: 20140521
  Receipt Date: 20140806
  Transmission Date: 20150326
  Serious: Yes (Hospitalization)
  Sender: FDA-Public Use
  Company Number: PHHY2014IT060172

PATIENT
  Age: 82 Year
  Sex: Female

DRUGS (6)
  1. ELOPRAM [Concomitant]
     Active Substance: CITALOPRAM HYDROBROMIDE
     Dosage: 7 DRP, UNK
  2. HALDOL [Concomitant]
     Active Substance: HALOPERIDOL
     Dosage: 3 DRP, UNK
     Route: 048
  3. IRBESARTAN. [Concomitant]
     Active Substance: IRBESARTAN
     Dosage: 150 MG, UNK
     Route: 048
  4. FUROSEMIDE. [Suspect]
     Active Substance: FUROSEMIDE
     Dosage: 3 DF, QD
     Route: 048
     Dates: start: 20140101, end: 20140416
  5. CANRENONE [Suspect]
     Active Substance: CANRENONE
     Dosage: 50 MG, QD
     Route: 048
     Dates: start: 20140101, end: 20140416
  6. RIVOTRIL [Concomitant]
     Active Substance: CLONAZEPAM
     Dosage: 5 DRP, UNK
     Route: 048

REACTIONS (2)
  - Dehydration [Not Recovered/Not Resolved]
  - Renal failure acute [Not Recovered/Not Resolved]

NARRATIVE: CASE EVENT DATE: 20140416
